FAERS Safety Report 7735635-1 (Version None)
Quarter: 2011Q3

REPORT INFORMATION
  Report Type: 
  Country: None (occurrence: None)
  Receive Date: 20110907
  Receipt Date: 20110830
  Transmission Date: 20111222
  Serious: Yes (Other)
  Sender: FDA-Public Use
  Company Number: US-B.I. PHARMACEUTICALS,INC./RIDGEFIELD-2011-BP-13904BP

PATIENT
  Sex: Female

DRUGS (8)
  1. PRADAXA [Suspect]
     Indication: ATRIAL FIBRILLATION
     Dosage: 300 MG
     Route: 048
     Dates: start: 20110301
  2. CARDIZEM [Concomitant]
     Indication: ATRIAL FIBRILLATION
     Dosage: 120 MG
     Route: 048
  3. BLOOD PRESSURE MED [Concomitant]
     Indication: HYPERTENSION
     Route: 048
  4. LOSARTAN POTASSIUM [Concomitant]
     Indication: HYPERTENSION
     Route: 048
  5. BONIVA [Concomitant]
     Indication: OSTEOPOROSIS
     Route: 048
  6. BLOOD PRESSURE MED [Concomitant]
     Route: 048
  7. TOPROL-XL [Concomitant]
     Indication: HYPERTENSION
     Route: 048
  8. VITAMIN B-12 [Concomitant]
     Indication: PERNICIOUS ANAEMIA

REACTIONS (4)
  - DYSPNOEA [None]
  - FALL [None]
  - HUMERUS FRACTURE [None]
  - PALPITATIONS [None]
